FAERS Safety Report 10196313 (Version 1)
Quarter: 2014Q2

REPORT INFORMATION
  Report Type: Spontaneous
  Country: US (occurrence: None)
  Receive Date: 20140523
  Receipt Date: 20140523
  Transmission Date: 20141212
  Serious: Yes (Life-Threatening, Hospitalization)
  Sender: FDA-Public Use
  Company Number: None

PATIENT
  Age: 67 Year
  Sex: Female
  Weight: 58.4 kg

DRUGS (3)
  1. STIVARGA [Suspect]
     Indication: COLON CANCER METASTATIC
     Dosage: 160 MG?QDX 1ST 21D OF 28 DAYS CYCLE.?ORAL
     Route: 048
     Dates: start: 20140510, end: 20140520
  2. LOSARTAN [Concomitant]
  3. AMLODIPINE [Concomitant]

REACTIONS (3)
  - Stevens-Johnson syndrome [None]
  - Diarrhoea [None]
  - Blood pressure increased [None]
